FAERS Safety Report 20547641 (Version 2)
Quarter: 2022Q1

REPORT INFORMATION
  Report Type: Spontaneous
  Country: US (occurrence: US)
  Receive Date: 20220303
  Receipt Date: 20220314
  Transmission Date: 20220423
  Serious: No
  Sender: FDA-Public Use
  Company Number: US-TEVA-2022-US-2012041

PATIENT
  Sex: Female

DRUGS (6)
  1. AJOVY [Suspect]
     Active Substance: FREMANEZUMAB-VFRM
     Indication: Migraine
     Dosage: 225/1.5 MG/ML
     Route: 065
     Dates: start: 202111
  2. AJOVY [Suspect]
     Active Substance: FREMANEZUMAB-VFRM
  3. SUMATRIPTAN [Concomitant]
     Active Substance: SUMATRIPTAN
     Route: 065
  4. NURTEC ODT [Concomitant]
     Active Substance: RIMEGEPANT SULFATE
     Route: 065
  5. TROKENDI XR [Concomitant]
     Active Substance: TOPIRAMATE
     Route: 065
  6. PROPRANOLOL [Concomitant]
     Active Substance: PROPRANOLOL HYDROCHLORIDE
     Route: 065

REACTIONS (4)
  - Nasal turbinate hypertrophy [Unknown]
  - Nasal septum deviation [Unknown]
  - Therapeutic product effect incomplete [Unknown]
  - Nasal turbinate abnormality [Unknown]

NARRATIVE: CASE EVENT DATE: 20220221
